FAERS Safety Report 4427412-4 (Version None)
Quarter: 2004Q3

REPORT INFORMATION
  Report Type: 
  Country: None (occurrence: None)
  Receive Date: 20040812
  Receipt Date: 20040730
  Transmission Date: 20050211
  Serious: Yes (Hospitalization, Other)
  Sender: FDA-Public Use
  Company Number: 2004036785

PATIENT
  Age: 4 Year
  Sex: Female
  Weight: 16 kg

DRUGS (7)
  1. ZITHROMAX [Suspect]
     Indication: PNEUMONIA
     Dosage: (1 IN 1 D), ORAL
     Route: 048
     Dates: start: 20040522, end: 20040524
  2. THEOPHYLLINE [Concomitant]
  3. TIPEPTIDINE HIBENZATE [Concomitant]
  4. CYPROHEPTADINE HYDROCHLORIDE [Concomitant]
  5. CARBOCISTEINE [Concomitant]
  6. LYSOZYME HYDROCHLORIDE [Concomitant]
  7. PEMIROLAST POTASSIUM [Concomitant]

REACTIONS (6)
  - BRAIN OEDEMA [None]
  - CLONIC CONVULSION [None]
  - ENCEPHALITIS [None]
  - ENCEPHALOPATHY [None]
  - FEBRILE CONVULSION [None]
  - PYREXIA [None]
